FAERS Safety Report 5368543-4 (Version None)
Quarter: 2007Q2

REPORT INFORMATION
  Report Type: 
  Country: None (occurrence: None)
  Receive Date: 20070625
  Receipt Date: 20070614
  Transmission Date: 20071010
  Serious: Yes (Hospitalization, Other)
  Sender: FDA-Public Use
  Company Number: US-JNJFOC-20070604131

PATIENT
  Sex: Female

DRUGS (3)
  1. FENTANYL [Suspect]
     Route: 062
  2. FENTANYL [Suspect]
     Indication: PAIN MANAGEMENT
     Dosage: 100 UG/HR AND 2X 12.5 UG/HR
     Route: 062
  3. NARCOTIC [Suspect]
     Indication: DRUG USE FOR UNKNOWN INDICATION
     Route: 042

REACTIONS (2)
  - DELIRIUM [None]
  - DRUG DISPENSING ERROR [None]
